FAERS Safety Report 8586541-4 (Version None)
Quarter: 2012Q3

REPORT INFORMATION
  Report Type: 
  Country: None (occurrence: None)
  Receive Date: 20120810
  Receipt Date: 20120801
  Transmission Date: 20120928
  Serious: Yes (Other)
  Sender: FDA-Public Use
  Company Number: US-ASTRAZENECA-2012SE54425

PATIENT
  Age: 28 Year
  Sex: Male
  Weight: 83.9 kg

DRUGS (1)
  1. SEROQUEL XR [Suspect]
     Route: 048
     Dates: start: 20111001, end: 20111101

REACTIONS (23)
  - SUICIDAL IDEATION [None]
  - PANIC ATTACK [None]
  - ABDOMINAL DISCOMFORT [None]
  - DRY MOUTH [None]
  - CONSTIPATION [None]
  - DYSARTHRIA [None]
  - TARDIVE DYSKINESIA [None]
  - AGGRESSION [None]
  - AGITATION [None]
  - INSOMNIA [None]
  - MANIA [None]
  - POLLAKIURIA [None]
  - IMPULSE-CONTROL DISORDER [None]
  - CONFUSIONAL STATE [None]
  - PSYCHOMOTOR HYPERACTIVITY [None]
  - MUSCLE TWITCHING [None]
  - DRUG DOSE OMISSION [None]
  - THIRST [None]
  - HUNGER [None]
  - IRRITABILITY [None]
  - MALAISE [None]
  - DYSPHEMIA [None]
  - SWOLLEN TONGUE [None]
